FAERS Safety Report 9157237 (Version 1)
Quarter: 2013Q1

REPORT INFORMATION
  Report Type: Spontaneous
  Country: FR (occurrence: FR)
  Receive Date: 20130312
  Receipt Date: 20130312
  Transmission Date: 20140127
  Serious: Yes (Other)
  Sender: FDA-Public Use
  Company Number: FR-BRISTOL-MYERS SQUIBB COMPANY-17457250

PATIENT
  Age: 49 Year
  Sex: Male

DRUGS (2)
  1. ABILIFY [Suspect]
     Indication: DELIRIUM
  2. ANAFRANIL [Suspect]

REACTIONS (1)
  - Pathological gambling [Unknown]
